FAERS Safety Report 8116323-9 (Version None)
Quarter: 2012Q1

REPORT INFORMATION
  Report Type: 
  Country: None (occurrence: None)
  Receive Date: 20120206
  Receipt Date: 20120202
  Transmission Date: 20120608
  Serious: Yes (Life-Threatening, Other)
  Sender: FDA-Public Use
  Company Number: US-GLAXOSMITHKLINE-A0954754A

PATIENT
  Age: 42 Year
  Sex: Female

DRUGS (2)
  1. LAMICTAL [Suspect]
     Indication: BIPOLAR DISORDER
     Route: 048
     Dates: start: 20111019, end: 20111119
  2. WELLBUTRIN [Concomitant]

REACTIONS (4)
  - RASH GENERALISED [None]
  - THROAT TIGHTNESS [None]
  - STEVENS-JOHNSON SYNDROME [None]
  - BRONCHOSPASM [None]
